FAERS Safety Report 4485685-6 (Version None)
Quarter: 2004Q4

REPORT INFORMATION
  Report Type: 
  Country: None (occurrence: None)
  Receive Date: 20041026
  Receipt Date: 20040413
  Transmission Date: 20050328
  Serious: Yes (Death)
  Sender: FDA-Public Use
  Company Number: US-GLAXOSMITHKLINE-A0508208A

PATIENT
  Sex: Male

DRUGS (7)
  1. AVANDIA [Suspect]
     Route: 048
     Dates: start: 20010430
  2. GLUCOTROL XL [Concomitant]
     Route: 048
  3. PRILOSEC [Concomitant]
     Indication: DRUG USE FOR UNKNOWN INDICATION
     Route: 048
  4. LIPITOR [Concomitant]
     Indication: DRUG USE FOR UNKNOWN INDICATION
     Route: 048
  5. GLUCOPHAGE [Concomitant]
     Route: 048
  6. ZYPREXA [Concomitant]
     Indication: MENTAL DISORDER
  7. COLACE [Concomitant]
     Indication: CONSTIPATION
     Route: 048

REACTIONS (1)
  - DEATH [None]
